FAERS Safety Report 4387785-8 (Version None)
Quarter: 2004Q2

REPORT INFORMATION
  Report Type: 
  Country: None (occurrence: None)
  Receive Date: 20040630
  Receipt Date: 20040628
  Transmission Date: 20050107
  Serious: Yes (Other)
  Sender: FDA-Public Use
  Company Number: US-GLAXOSMITHKLINE-A0516415A

PATIENT
  Sex: Male
  Weight: 2.7 kg

DRUGS (1)
  1. BUPROPION HCL [Suspect]
     Dosage: 150MG TWICE PER DAY
     Dates: start: 20030820, end: 20030903

REACTIONS (3)
  - DRUG EXPOSURE DURING PREGNANCY [None]
  - JAUNDICE [None]
  - PULMONARY OEDEMA [None]
